FAERS Safety Report 16859663 (Version 1)
Quarter: 2019Q3

REPORT INFORMATION
  Report Type: Spontaneous
  Country: US (occurrence: US)
  Receive Date: 20190927
  Receipt Date: 20190927
  Transmission Date: 20191005
  Serious: Yes (Hospitalization, Other)
  Sender: FDA-Public Use
  Company Number: US-NOVOPROD-686139

PATIENT
  Age: 57 Year
  Sex: Female
  Weight: 127 kg

DRUGS (1)
  1. LEVEMIR [Suspect]
     Active Substance: INSULIN DETEMIR
     Indication: TYPE 2 DIABETES MELLITUS
     Dosage: 20 IU, BID
     Route: 058

REACTIONS (3)
  - Blood cholesterol increased [Unknown]
  - Myocardial infarction [Recovering/Resolving]
  - Diplegia [Unknown]

NARRATIVE: CASE EVENT DATE: 201208
